FAERS Safety Report 21646916 (Version 2)
Quarter: 2022Q4

REPORT INFORMATION
  Report Type: Report from Study
  Country: US (occurrence: US)
  Receive Date: 20221127
  Receipt Date: 20221220
  Transmission Date: 20230112
  Serious: Yes (Other)
  Sender: FDA-Public Use
  Company Number: US-TEVA-2022-US-2827910

PATIENT
  Sex: Female

DRUGS (2)
  1. OLANZAPINE [Suspect]
     Active Substance: OLANZAPINE
     Indication: Chemotherapy side effect prophylaxis
     Route: 065
  2. SELINEXOR [Concomitant]
     Active Substance: SELINEXOR
     Indication: Neoplasm malignant
     Route: 065

REACTIONS (3)
  - Partial seizures [Unknown]
  - Febrile convulsion [Unknown]
  - Tremor [Unknown]
